FAERS Safety Report 4594384-1 (Version None)
Quarter: 2005Q1

REPORT INFORMATION
  Report Type: 
  Country: None (occurrence: None)
  Receive Date: 20050301
  Receipt Date: 20041213
  Transmission Date: 20050727
  Serious: No
  Sender: FDA-Public Use
  Company Number: 2004095331

PATIENT
  Age: 55 Year
  Sex: Female

DRUGS (2)
  1. VALTREX [Suspect]
     Route: 048
  2. SUDAFED 12 HOUR [Suspect]
     Dosage: 30MG UNKNOWN
     Route: 048

REACTIONS (1)
  - DIZZINESS [None]
